FAERS Safety Report 18141315 (Version 1)
Quarter: 2020Q3

REPORT INFORMATION
  Report Type: Spontaneous
  Country: US (occurrence: US)
  Receive Date: 20200812
  Receipt Date: 20200812
  Transmission Date: 20201103
  Serious: Yes (Other)
  Sender: FDA-Public Use
  Company Number: NVSC2020US222131

PATIENT
  Age: 44 Year
  Sex: Male

DRUGS (1)
  1. HYDROXYCHLOROQUINE SULFATE TABLETS USP [Suspect]
     Active Substance: HYDROXYCHLOROQUINE SULFATE
     Indication: COVID-19
     Dosage: 400 MG( ONLY ONE DOSE)
     Route: 065
     Dates: start: 20200321

REACTIONS (2)
  - Product use in unapproved indication [Unknown]
  - Haemolysis [Recovered/Resolved]
